FAERS Safety Report 18342390 (Version 3)
Quarter: 2021Q1

REPORT INFORMATION
  Report Type: Spontaneous
  Country: JP (occurrence: JP)
  Receive Date: 20201005
  Receipt Date: 20210118
  Transmission Date: 20210419
  Serious: Yes (Other)
  Sender: FDA-Public Use
  Company Number: JP-GLAXOSMITHKLINE-JP2020195542

PATIENT
  Age: 50 Year
  Sex: Male
  Weight: 59 kg

DRUGS (3)
  1. CHINESE MEDICINE [Concomitant]
     Active Substance: UNSPECIFIED INGREDIENT
     Dosage: 7.5 G PER DAY, REGULAR USE
  2. VALTREX [Suspect]
     Active Substance: VALACYCLOVIR HYDROCHLORIDE
     Indication: HERPES ZOSTER
     Dosage: 2 TABLETS PER DAY FOR 2 WEEKS
     Route: 048
     Dates: start: 202009
  3. CHINESE MEDICINE [Concomitant]
     Active Substance: UNSPECIFIED INGREDIENT
     Dosage: 7.5 G PER DAY, REGULAR USE

REACTIONS (3)
  - Prescribed underdose [Unknown]
  - Incorrect product administration duration [Unknown]
  - Hypokalaemia [Recovered/Resolved]

NARRATIVE: CASE EVENT DATE: 202009
